FAERS Safety Report 23582447 (Version 3)
Quarter: 2024Q2

REPORT INFORMATION
  Report Type: Spontaneous
  Country: US (occurrence: US)
  Receive Date: 20240229
  Receipt Date: 20240403
  Transmission Date: 20240716
  Serious: No
  Sender: FDA-Public Use
  Company Number: US-BIOMARINAP-US-2024-156147

PATIENT

DRUGS (22)
  1. PALYNZIQ [Suspect]
     Active Substance: PEGVALIASE-PQPZ
     Indication: Phenylketonuria
     Dosage: 2.5 MILLIGRAM, QW
     Route: 058
     Dates: start: 20231206
  2. PALYNZIQ [Suspect]
     Active Substance: PEGVALIASE-PQPZ
     Dosage: 2.5 MILLIGRAM
     Route: 058
     Dates: start: 20240202, end: 20240219
  3. PALYNZIQ [Suspect]
     Active Substance: PEGVALIASE-PQPZ
     Dosage: 2.5 MILLIGRAM
     Route: 058
     Dates: start: 202402
  4. PALYNZIQ [Suspect]
     Active Substance: PEGVALIASE-PQPZ
     Dosage: 2.5 MILLIGRAM, QOD
     Route: 058
  5. PALYNZIQ [Suspect]
     Active Substance: PEGVALIASE-PQPZ
     Dosage: 10 MILLIGRAM, QOD
     Route: 058
  6. BENADRYL [Concomitant]
     Active Substance: DIPHENHYDRAMINE HYDROCHLORIDE
     Indication: Injection site swelling
     Dosage: UNK
     Dates: start: 20231214
  7. BENADRYL [Concomitant]
     Active Substance: DIPHENHYDRAMINE HYDROCHLORIDE
     Indication: Injection site pruritus
  8. BENADRYL [Concomitant]
     Active Substance: DIPHENHYDRAMINE HYDROCHLORIDE
     Indication: Injection site pain
  9. BENADRYL [Concomitant]
     Active Substance: DIPHENHYDRAMINE HYDROCHLORIDE
     Indication: Injection site erythema
  10. IBUPROFEN [Concomitant]
     Active Substance: IBUPROFEN
     Indication: Injection site swelling
     Dosage: UNK
     Dates: start: 20231214
  11. IBUPROFEN [Concomitant]
     Active Substance: IBUPROFEN
     Indication: Injection site pruritus
  12. IBUPROFEN [Concomitant]
     Active Substance: IBUPROFEN
     Indication: Injection site pain
  13. IBUPROFEN [Concomitant]
     Active Substance: IBUPROFEN
     Indication: Injection site erythema
  14. PREDNISONE [Concomitant]
     Active Substance: PREDNISONE
     Indication: Injection site swelling
     Dosage: UNK
     Dates: start: 20231214
  15. PREDNISONE [Concomitant]
     Active Substance: PREDNISONE
     Indication: Injection site pruritus
  16. PREDNISONE [Concomitant]
     Active Substance: PREDNISONE
     Indication: Injection site pain
  17. PREDNISONE [Concomitant]
     Active Substance: PREDNISONE
     Indication: Injection site erythema
  18. KETOROLAC TROMETHAMINE [Concomitant]
     Active Substance: KETOROLAC TROMETHAMINE
     Indication: Product used for unknown indication
  19. FAMOTIDINE [Concomitant]
     Active Substance: FAMOTIDINE
     Indication: Premedication
     Dosage: 10 MILLIGRAM
  20. FAMOTIDINE [Concomitant]
     Active Substance: FAMOTIDINE
     Dosage: 40 MILLIGRAM, QD
     Dates: start: 20231128
  21. LORATADINE [Concomitant]
     Active Substance: LORATADINE
     Indication: Premedication
     Dosage: 10 MILLIGRAM, QD
  22. LORATADINE [Concomitant]
     Active Substance: LORATADINE
     Dosage: 20 MILLIGRAM, BID
     Dates: start: 20231128

REACTIONS (4)
  - Arthralgia [Not Recovered/Not Resolved]
  - Inflammation [Recovering/Resolving]
  - Gait disturbance [Recovering/Resolving]
  - Off label use [Unknown]

NARRATIVE: CASE EVENT DATE: 20231223
